FAERS Safety Report 5213426-3 (Version None)
Quarter: 2007Q1

REPORT INFORMATION
  Report Type: 
  Country: None (occurrence: None)
  Receive Date: 20070119
  Receipt Date: 20070109
  Transmission Date: 20070707
  Serious: Yes (Hospitalization)
  Sender: FDA-Public Use
  Company Number: JP-MERCK-0612USA03721

PATIENT
  Age: 34 Year
  Sex: Female

DRUGS (10)
  1. SINGULAIR [Suspect]
     Indication: UPPER RESPIRATORY TRACT INFECTION
     Route: 048
     Dates: start: 20061206, end: 20061220
  2. CLARITHROMYCIN [Concomitant]
     Route: 048
     Dates: start: 20061206
  3. CARBOCYSTEINE [Concomitant]
     Route: 048
     Dates: start: 20061206
  4. MEDICON [Concomitant]
     Route: 048
     Dates: start: 20061206
  5. MIRADOL [Concomitant]
     Route: 048
  6. ALPRAZOLAM [Concomitant]
     Route: 048
  7. RIVOTRIL [Concomitant]
     Route: 048
  8. VEGETAMIN B [Concomitant]
     Route: 048
  9. ZOLPIDEM TARTRATE [Concomitant]
     Route: 048
  10. SILECE [Concomitant]
     Route: 048

REACTIONS (6)
  - DRUG ERUPTION [None]
  - EOSINOPHIL COUNT INCREASED [None]
  - PYREXIA [None]
  - RASH GENERALISED [None]
  - RASH MORBILLIFORM [None]
  - VIRAL INFECTION [None]
